FAERS Safety Report 10419069 (Version 1)
Quarter: 2014Q2

REPORT INFORMATION
  Report Type: Report from Study
  Country: US (occurrence: None)
  Receive Date: 20140627
  Receipt Date: 20140627
  Transmission Date: 20141212
  Serious: No
  Sender: FDA-Public Use
  Company Number: CABO-14004125

PATIENT
  Age: 41 Year
  Sex: Female

DRUGS (10)
  1. COMETRIQ (CABOZANTINIB) CAPSULE [Suspect]
     Indication: THYROID CANCER
     Route: 048
     Dates: start: 20140302, end: 20140517
  2. AMBIEN (ZOLPIDEM TARTRATE) [Concomitant]
  3. CELEXA (CITALOPRAM HYDROBROMIDE) [Concomitant]
  4. CYCLOBENZAPRINE [Concomitant]
  5. LEVOTHYROXINE [Concomitant]
  6. LOVASTATIN [Concomitant]
  7. TRAMADOL [Concomitant]
  8. NORVASC (AMLODIPINE BESILATE) [Concomitant]
  9. OXYCODONE [Concomitant]
  10. ZOFRAN (ONDANSETRON) [Concomitant]

REACTIONS (7)
  - Nasal congestion [None]
  - Sinusitis [None]
  - Pain [None]
  - Stomatitis [None]
  - Diarrhoea [None]
  - Nausea [None]
  - Hair colour changes [None]
